FAERS Safety Report 10174719 (Version 1)
Quarter: 2014Q2

REPORT INFORMATION
  Report Type: Spontaneous
  Country: US (occurrence: US)
  Receive Date: 20140515
  Receipt Date: 20140515
  Transmission Date: 20141212
  Serious: Yes (Other)
  Sender: FDA-Public Use
  Company Number: US-PFIZER INC-2014129534

PATIENT
  Age: 42 Year
  Sex: Female
  Weight: 53.06 kg

DRUGS (2)
  1. RELPAX [Suspect]
     Indication: HEADACHE
     Dosage: 40 MG, 1X/DAY
     Route: 048
  2. RELPAX [Suspect]
     Dosage: 20 MG (BY SPLITTING 40MG INTO HALF), 1X/DAY
     Route: 048

REACTIONS (2)
  - Hearing impaired [Unknown]
  - Intentional product misuse [Unknown]
